FAERS Safety Report 15867894 (Version 2)
Quarter: 2019Q1

REPORT INFORMATION
  Report Type: Report from Study
  Country: IT (occurrence: IT)
  Receive Date: 20190125
  Receipt Date: 20190326
  Transmission Date: 20190417
  Serious: Yes (Other)
  Sender: FDA-Public Use
  Company Number: IT-MYLANLABS-2019M1006358

PATIENT
  Age: 23 Year
  Sex: Female

DRUGS (2)
  1. NICOZIDE [Suspect]
     Active Substance: ISONIAZID
     Indication: PRODUCT USED FOR UNKNOWN INDICATION
     Dosage: 25 DOSAGE FORM, TOTAL
     Route: 048
     Dates: start: 20170611, end: 20170611
  2. METFORMIN [Suspect]
     Active Substance: METFORMIN HYDROCHLORIDE
     Indication: PRODUCT USED FOR UNKNOWN INDICATION
     Dosage: 7 DOSAGE FORM, TOTAL
     Route: 048
     Dates: start: 20170611, end: 20170611

REACTIONS (4)
  - Intentional self-injury [Unknown]
  - Sopor [Recovering/Resolving]
  - Drug abuse [Unknown]
  - Delusion [Recovering/Resolving]

NARRATIVE: CASE EVENT DATE: 20170611
